FAERS Safety Report 9886717 (Version 2)
Quarter: 2014Q1

REPORT INFORMATION
  Report Type: Report from Study
  Country: DE (occurrence: DE)
  Receive Date: 20140210
  Receipt Date: 20140210
  Transmission Date: 20141002
  Serious: Yes (Other)
  Sender: FDA-Public Use
  Company Number: DE-ABBVIE-13P-062-1153717-00

PATIENT
  Age: 57 Year
  Sex: Female

DRUGS (2)
  1. HUMIRA [Suspect]
     Indication: PSORIASIS
     Route: 058
     Dates: start: 20090312
  2. METHOTREXATE [Concomitant]
     Indication: PSORIASIS
     Dosage: 0.5 MG /WEEKLY
     Dates: start: 20110310, end: 20131212

REACTIONS (4)
  - Polyneuropathy [Not Recovered/Not Resolved]
  - Hypothyroidism [Not Recovered/Not Resolved]
  - Hypertension [Not Recovered/Not Resolved]
  - Polyneuropathy [Not Recovered/Not Resolved]
